FAERS Safety Report 9052097 (Version 1)
Quarter: 2013Q1

REPORT INFORMATION
  Report Type: Spontaneous
  Country: US (occurrence: None)
  Receive Date: 20130131
  Receipt Date: 20130131
  Transmission Date: 20140127
  Serious: Yes (Hospitalization)
  Sender: FDA-Public Use
  Company Number: None

PATIENT
  Age: 75 Year
  Sex: Male
  Weight: 100 kg

DRUGS (7)
  1. HUMULIN N [Suspect]
     Indication: DIABETES MELLITUS
     Route: 058
  2. NORVASC [Concomitant]
  3. LEVAQUIN [Concomitant]
  4. ASPIRIN [Concomitant]
  5. COREG [Concomitant]
  6. ZOCOR [Concomitant]
  7. ACTOS [Concomitant]

REACTIONS (3)
  - Unresponsive to stimuli [None]
  - Encephalopathy [None]
  - Eating disorder [None]
